FAERS Safety Report 9796659 (Version 1)
Quarter: 2014Q1

REPORT INFORMATION
  Report Type: Spontaneous
  Country: US (occurrence: US)
  Receive Date: 20140103
  Receipt Date: 20140103
  Transmission Date: 20141002
  Serious: Yes (Death)
  Sender: FDA-Public Use
  Company Number: US-GLAXOSMITHKLINE-A1055244A

PATIENT
  Age: 71 Year
  Sex: Female

DRUGS (9)
  1. VOTRIENT [Suspect]
     Indication: MYELODYSPLASTIC SYNDROME
     Dosage: 400MG PER DAY
     Route: 048
     Dates: start: 20130618, end: 20131012
  2. AMLODIPINE [Concomitant]
  3. DULERA [Concomitant]
  4. MAGNESIUM [Concomitant]
  5. VITAMIN C [Concomitant]
  6. TYLENOL [Concomitant]
  7. HYDROCODONE [Concomitant]
  8. PSYLLIUM HUSK [Concomitant]
  9. MILK OF MAGNESIA [Concomitant]

REACTIONS (1)
  - Death [Fatal]
